FAERS Safety Report 7408757-2 (Version None)
Quarter: 2011Q2

REPORT INFORMATION
  Report Type: 
  Country: None (occurrence: None)
  Receive Date: 20110412
  Receipt Date: 20110330
  Transmission Date: 20111010
  Serious: Yes (Hospitalization)
  Sender: FDA-Public Use
  Company Number: DE-ELI_LILLY_AND_COMPANY-DE201102006132

PATIENT
  Sex: Male

DRUGS (1)
  1. ZYPADHERA [Suspect]
     Route: 030

REACTIONS (6)
  - BLOOD PRESSURE DECREASED [None]
  - SEDATION [None]
  - LOSS OF CONSCIOUSNESS [None]
  - GLOSSOPHARYNGEAL NERVE DISORDER [None]
  - BRADYCARDIA [None]
  - SOMNOLENCE [None]
